FAERS Safety Report 17050117 (Version 2)
Quarter: 2019Q4

REPORT INFORMATION
  Report Type: Spontaneous
  Country: UY (occurrence: UY)
  Receive Date: 20191119
  Receipt Date: 20191230
  Transmission Date: 20200122
  Serious: Yes (Death, Hospitalization)
  Sender: FDA-Public Use
  Company Number: UY-INCYTE CORPORATION-2019IN011273

PATIENT

DRUGS (1)
  1. JAKAVI [Suspect]
     Active Substance: RUXOLITINIB
     Indication: MYELOFIBROSIS
     Dosage: 40 MG, QD
     Route: 048
     Dates: start: 201609

REACTIONS (10)
  - Urinary tract infection [Fatal]
  - Pulmonary mass [Fatal]
  - Metastases to central nervous system [Fatal]
  - Second primary malignancy [Fatal]
  - Confusional state [Fatal]
  - Metabolic disorder [Fatal]
  - Metastases to liver [Fatal]
  - Lung neoplasm malignant [Fatal]
  - Vertigo [Fatal]
  - Steroid diabetes [Fatal]

NARRATIVE: CASE EVENT DATE: 201903
